FAERS Safety Report 9681815 (Version 1)
Quarter: 2013Q4

REPORT INFORMATION
  Report Type: Spontaneous
  Country: FR (occurrence: FR)
  Receive Date: 20131111
  Receipt Date: 20131111
  Transmission Date: 20140711
  Serious: Yes (Other)
  Sender: FDA-Public Use
  Company Number: PHHY2013FR125362

PATIENT
  Sex: 0

DRUGS (6)
  1. NICARDIPINE [Suspect]
  2. VANCOMYCIN [Suspect]
  3. CEFOTAXIME [Suspect]
  4. DALTEPARIN SODIUM [Suspect]
  5. GENTAMICIN [Suspect]
  6. WARFARIN [Suspect]

REACTIONS (1)
  - Linear IgA disease [Unknown]
